FAERS Safety Report 7766155-6 (Version None)
Quarter: 2011Q3

REPORT INFORMATION
  Report Type: 
  Country: None (occurrence: None)
  Receive Date: 20110921
  Receipt Date: 20110913
  Transmission Date: 20111222
  Serious: Yes (Hospitalization, Disabling, Other)
  Sender: FDA-Public Use
  Company Number: US-MERCK-1104USA02223

PATIENT
  Age: 50 Year
  Sex: Female
  Weight: 75 kg

DRUGS (5)
  1. FOSAMAX PLUS D [Suspect]
     Indication: OSTEOPOROSIS
     Route: 048
  2. ESTROGENS, CONJUGATED [Concomitant]
     Route: 065
     Dates: start: 19920101
  3. FOSAMAX [Suspect]
     Indication: OSTEOPOROSIS
     Route: 048
     Dates: start: 19950101, end: 20061201
  4. FOSAMAX [Suspect]
     Route: 048
     Dates: start: 20061201, end: 20100101
  5. ONE-A-DAY ESSENTIAL VITAMINS [Concomitant]
     Route: 065

REACTIONS (55)
  - POST HERPETIC NEURALGIA [None]
  - MULTIPLE SCLEROSIS [None]
  - BARRETT'S OESOPHAGUS [None]
  - IMPAIRED HEALING [None]
  - HEAD INJURY [None]
  - GASTROOESOPHAGEAL REFLUX DISEASE [None]
  - CORONARY ARTERY DISEASE [None]
  - CHRONIC FATIGUE SYNDROME [None]
  - IRON DEFICIENCY [None]
  - OSTEOARTHRITIS [None]
  - PERNICIOUS ANAEMIA [None]
  - IRON DEFICIENCY ANAEMIA [None]
  - HYPERSENSITIVITY [None]
  - FALL [None]
  - GALLBLADDER DISORDER [None]
  - NECROSIS [None]
  - ARTHROPATHY [None]
  - MUSCLE STRAIN [None]
  - PAIN [None]
  - SLEEP DISORDER THERAPY [None]
  - OSTEOMALACIA [None]
  - BLOOD OESTROGEN DECREASED [None]
  - RADICULOPATHY [None]
  - MYOCARDIAL INFARCTION [None]
  - DYSPEPSIA [None]
  - BONE METABOLISM DISORDER [None]
  - BACK PAIN [None]
  - STRESS FRACTURE [None]
  - DRUG HYPERSENSITIVITY [None]
  - NARCOLEPSY [None]
  - INTESTINAL MUCOSAL HYPERTROPHY [None]
  - INTERVERTEBRAL DISC DEGENERATION [None]
  - LICHENOID KERATOSIS [None]
  - FINGER AMPUTATION [None]
  - TRAUMATIC HAEMATOMA [None]
  - PAIN IN JAW [None]
  - ROAD TRAFFIC ACCIDENT [None]
  - HYPERLIPIDAEMIA [None]
  - FEMUR FRACTURE [None]
  - FRACTURE [None]
  - FOOT FRACTURE [None]
  - OSTEOPOROSIS [None]
  - HEART RATE INCREASED [None]
  - ARTHRALGIA [None]
  - GASTRITIS ATROPHIC [None]
  - DEPRESSION [None]
  - SPINAL COLUMN INJURY [None]
  - NEPHROLITHIASIS [None]
  - VITAMIN D DEFICIENCY [None]
  - ANXIETY [None]
  - HYPERCHOLESTEROLAEMIA [None]
  - SPONDYLOLYSIS [None]
  - HAEMORRHOIDS [None]
  - HYPERTENSION [None]
  - DIABETES MELLITUS [None]
